FAERS Safety Report 14755569 (Version 2)
Quarter: 2018Q2

REPORT INFORMATION
  Report Type: Spontaneous
  Country: PE (occurrence: PE)
  Receive Date: 20180413
  Receipt Date: 20180507
  Transmission Date: 20180711
  Serious: Yes (Other)
  Sender: FDA-Public Use
  Company Number: CL-MERCK KGAA-2045717

PATIENT
  Sex: Female

DRUGS (1)
  1. NOVOTHYROX [Suspect]
     Active Substance: LEVOTHYROXINE SODIUM
     Indication: HYPOTHYROIDISM

REACTIONS (16)
  - Trichorrhexis [None]
  - Peripheral coldness [None]
  - Oropharyngeal pain [None]
  - Yawning [None]
  - Feeling hot [None]
  - Choking [None]
  - Onychoclasis [None]
  - Abdominal discomfort [None]
  - Myalgia [None]
  - Discomfort [None]
  - Alopecia [None]
  - Dizziness [None]
  - Fatigue [None]
  - Depression [None]
  - Nausea [None]
  - Crying [None]
